FAERS Safety Report 19140769 (Version 1)
Quarter: 2021Q2

REPORT INFORMATION
  Report Type: Spontaneous
  Country: US (occurrence: US)
  Receive Date: 20210415
  Receipt Date: 20210415
  Transmission Date: 20210717
  Serious: No
  Sender: FDA-Public Use
  Company Number: US-BIOGEN-2020BI00860051

PATIENT
  Age: 51 Year
  Sex: Female

DRUGS (8)
  1. TECFIDERA [Suspect]
     Active Substance: DIMETHYL FUMARATE
     Route: 048
     Dates: start: 20200330
  2. LEVOTHYROXINE SODIUM. [Concomitant]
     Active Substance: LEVOTHYROXINE SODIUM
     Route: 065
  3. HYDROXYZINE HCL [Concomitant]
     Active Substance: HYDROXYZINE HYDROCHLORIDE
     Route: 065
  4. TECFIDERA [Suspect]
     Active Substance: DIMETHYL FUMARATE
     Route: 048
     Dates: start: 2020
  5. TECFIDERA [Suspect]
     Active Substance: DIMETHYL FUMARATE
     Route: 048
     Dates: start: 2020
  6. METFORMIN HCL [Concomitant]
     Active Substance: METFORMIN HYDROCHLORIDE
     Route: 065
  7. TECFIDERA [Suspect]
     Active Substance: DIMETHYL FUMARATE
     Indication: MULTIPLE SCLEROSIS
     Route: 048
     Dates: start: 20200403
  8. TECFIDERA [Suspect]
     Active Substance: DIMETHYL FUMARATE
     Route: 048

REACTIONS (29)
  - Synovial cyst [Not Recovered/Not Resolved]
  - Hypoaesthesia [Unknown]
  - Burning sensation [Unknown]
  - Amnesia [Not Recovered/Not Resolved]
  - Tremor [Unknown]
  - Musculoskeletal disorder [Recovered/Resolved]
  - Hot flush [Not Recovered/Not Resolved]
  - Muscle twitching [Not Recovered/Not Resolved]
  - COVID-19 [Unknown]
  - Skin irritation [Recovered/Resolved with Sequelae]
  - Chest pain [Recovered/Resolved]
  - Mobility decreased [Not Recovered/Not Resolved]
  - Mental disorder [Not Recovered/Not Resolved]
  - Tongue disorder [Unknown]
  - Neuropathy peripheral [Not Recovered/Not Resolved]
  - Tongue dry [Unknown]
  - Intervertebral disc degeneration [Unknown]
  - Head injury [Recovered/Resolved with Sequelae]
  - Urinary incontinence [Not Recovered/Not Resolved]
  - Dysstasia [Not Recovered/Not Resolved]
  - Swollen tongue [Recovered/Resolved]
  - Malaise [Unknown]
  - Muscular weakness [Recovered/Resolved with Sequelae]
  - Dizziness [Recovered/Resolved with Sequelae]
  - Pruritus [Unknown]
  - Product dose omission issue [Unknown]
  - Gait disturbance [Not Recovered/Not Resolved]
  - Paraesthesia [Not Recovered/Not Resolved]
  - Pain in extremity [Recovered/Resolved with Sequelae]

NARRATIVE: CASE EVENT DATE: 20200403
